FAERS Safety Report 10763834 (Version 1)
Quarter: 2015Q1

REPORT INFORMATION
  Report Type: Other
  Country: US (occurrence: US)
  Receive Date: 20150204
  Receipt Date: 20150204
  Transmission Date: 20150721
  Serious: No
  Sender: FDA-Public Use
  Company Number: US-ACORDA-ACO_102080_2014

PATIENT
  Age: 54 Year
  Sex: Female
  Weight: 59.41 kg

DRUGS (2)
  1. GILENYA [Concomitant]
     Active Substance: FINGOLIMOD HYDROCHLORIDE
     Indication: PRODUCT USED FOR UNKNOWN INDICATION
     Dosage: UNK
     Dates: start: 201204
  2. AMPYRA [Suspect]
     Active Substance: DALFAMPRIDINE
     Indication: GAIT DISTURBANCE
     Dosage: 10 MG, BID
     Route: 048
     Dates: start: 201402, end: 20140225

REACTIONS (5)
  - Weight increased [Recovered/Resolved]
  - Urine output decreased [Recovered/Resolved]
  - Fluid retention [Recovering/Resolving]
  - Vomiting [Not Recovered/Not Resolved]
  - Drug ineffective [Unknown]

NARRATIVE: CASE EVENT DATE: 201402
